FAERS Safety Report 25500392 (Version 1)
Quarter: 2025Q3

REPORT INFORMATION
  Report Type: Spontaneous
  Country: MX (occurrence: MX)
  Receive Date: 20250701
  Receipt Date: 20250701
  Transmission Date: 20251021
  Serious: Yes (Other)
  Sender: BAYER HEALTHCARE PHARMACEUTICALS INC.
  Company Number: MX-BAYER-2025A086593

PATIENT
  Sex: Male

DRUGS (7)
  1. DAROLUTAMIDE [Suspect]
     Active Substance: DAROLUTAMIDE
     Indication: Hormone-dependent prostate cancer
     Dates: start: 2025
  2. DOCETAXEL [Suspect]
     Active Substance: DOCETAXEL
  3. DOCETAXEL [Suspect]
     Active Substance: DOCETAXEL
  4. DOCETAXEL [Suspect]
     Active Substance: DOCETAXEL
  5. DOCETAXEL [Suspect]
     Active Substance: DOCETAXEL
  6. DOCETAXEL [Suspect]
     Active Substance: DOCETAXEL
  7. DOCETAXEL [Suspect]
     Active Substance: DOCETAXEL

REACTIONS (1)
  - Metastases to bone [Not Recovered/Not Resolved]

NARRATIVE: CASE EVENT DATE: 20250615
